FAERS Safety Report 25204641 (Version 2)
Quarter: 2025Q2

REPORT INFORMATION
  Report Type: Spontaneous
  Country: JP (occurrence: JP)
  Receive Date: 20250416
  Receipt Date: 20250626
  Transmission Date: 20250716
  Serious: Yes (Hospitalization, Other)
  Sender: EISAI
  Company Number: JP-Eisai-EC-2025-187370

PATIENT
  Age: 83 Year
  Sex: Male

DRUGS (3)
  1. LENVIMA [Suspect]
     Active Substance: LENVATINIB
     Indication: Metastatic renal cell carcinoma
  2. LENVIMA [Suspect]
     Active Substance: LENVATINIB
  3. KEYTRUDA [Suspect]
     Active Substance: PEMBROLIZUMAB
     Indication: Metastatic renal cell carcinoma
     Dates: start: 20250107, end: 2025

REACTIONS (3)
  - Immune-mediated adrenal insufficiency [Unknown]
  - Cytokine release syndrome [Recovered/Resolved]
  - Proteinuria [Unknown]

NARRATIVE: CASE EVENT DATE: 20250101
